FAERS Safety Report 13955516 (Version 1)
Quarter: 2017Q3

REPORT INFORMATION
  Report Type: Spontaneous
  Country: US (occurrence: US)
  Receive Date: 20170911
  Receipt Date: 20170911
  Transmission Date: 20171128
  Serious: No
  Sender: FDA-Public Use
  Company Number: US-ARALEZ PHARMACEUTICALS R+D INC.-2017-ARA-000469

PATIENT

DRUGS (1)
  1. ZONTIVITY [Suspect]
     Active Substance: VORAPAXAR SULFATE
     Indication: PRODUCT USED FOR UNKNOWN INDICATION
     Dosage: 2.08 MG, QD
     Route: 065

REACTIONS (1)
  - Incorrect route of drug administration [Unknown]
